FAERS Safety Report 10696768 (Version 4)
Quarter: 2015Q2

REPORT INFORMATION
  Report Type: Report from Study
  Country: FR (occurrence: FR)
  Receive Date: 20150108
  Receipt Date: 20150626
  Transmission Date: 20150821
  Serious: Yes (Life-Threatening)
  Sender: FDA-Public Use
  Company Number: FR-ROCHE-1517761

PATIENT
  Age: 66 Year
  Sex: Male

DRUGS (7)
  1. LENALIDOMIDE [Suspect]
     Active Substance: LENALIDOMIDE
     Dosage: LAST DOSE ADMINISTERED BEFORE SAE 25 MG
     Route: 048
     Dates: start: 20131226, end: 20141127
  2. RITUXIMAB [Suspect]
     Active Substance: RITUXIMAB
     Dosage: CUMULATIVE DOSE 5640MG
     Route: 042
     Dates: start: 20140123, end: 20140717
  3. RITUXIMAB [Suspect]
     Active Substance: RITUXIMAB
     Dosage: LAST DOSE ADMINISTERED BEFORE SAE 700 MG, CUMULATIVE DOSE 5640MG
     Route: 042
     Dates: start: 20131226, end: 20140717
  4. LENALIDOMIDE [Suspect]
     Active Substance: LENALIDOMIDE
     Indication: CENTRAL NERVOUS SYSTEM LYMPHOMA
     Dosage: LAST DATE OF ADMINISTRATION WAS 06/AUG/2014, AND LAST DOSE ADMINISTERED BEFORE SAE: 25 MG?CUMULATIVE
     Route: 048
     Dates: start: 20131226, end: 20140116
  5. NEODEX (FRANCE) [Suspect]
     Active Substance: DEXAMETHASONE ACETATE
     Indication: CENTRAL NERVOUS SYSTEM LYMPHOMA
     Route: 048
     Dates: start: 20131226, end: 20131229
  6. RITUXIMAB [Suspect]
     Active Substance: RITUXIMAB
     Indication: CENTRAL NERVOUS SYSTEM LYMPHOMA
     Dosage: CUMULATIVE DOSE 5640MG
     Route: 042
     Dates: start: 20131226, end: 20131226
  7. LENALIDOMIDE [Suspect]
     Active Substance: LENALIDOMIDE
     Route: 048
     Dates: start: 20140123, end: 20140806

REACTIONS (1)
  - Malignant melanoma [Recovered/Resolved]

NARRATIVE: CASE EVENT DATE: 20140813
